FAERS Safety Report 10692778 (Version 1)
Quarter: 2015Q1

REPORT INFORMATION
  Report Type: Spontaneous
  Country: US (occurrence: None)
  Receive Date: 20150105
  Receipt Date: 20150105
  Transmission Date: 20150720
  Serious: Yes (Disabling)
  Sender: FDA-Public Use
  Company Number: None

PATIENT
  Age: 46 Year
  Sex: Female
  Weight: 92.53 kg

DRUGS (1)
  1. LOSARTAN 25MG [Suspect]
     Active Substance: LOSARTAN
     Indication: HYPERTENSION
     Dosage: 1,  ONCE DAILY, TAKEN BY MOUTH
     Route: 048
     Dates: start: 20121108, end: 20131226

REACTIONS (12)
  - Chest pain [None]
  - Constipation [None]
  - Hiatus hernia [None]
  - Palpitations [None]
  - Anxiety [None]
  - Arthralgia [None]
  - Vision blurred [None]
  - Memory impairment [None]
  - Muscle spasms [None]
  - Choking [None]
  - Sleep disorder [None]
  - Restlessness [None]

NARRATIVE: CASE EVENT DATE: 20140101
